FAERS Safety Report 9177992 (Version 1)
Quarter: 2012Q4

REPORT INFORMATION
  Report Type: 
  Country: US (occurrence: US)
  Receive Date: 20121018
  Receipt Date: 20121018
  Transmission Date: 20130627
  Serious: Yes (Other)
  Sender: FDA-Public Use
  Company Number: US-RB-045630-12

PATIENT
  Age: 0 None
  Sex: Female

DRUGS (5)
  1. SUBOXONE FILM [Suspect]
     Indication: DRUG DEPENDENCE
     Dosage: Suboxone film; dosing details unknown
     Route: 064
     Dates: start: 201101, end: 201101
  2. GENERIC BUPRENORPHINE [Suspect]
     Route: 064
     Dates: start: 201101, end: 20110812
  3. GENERIC BUPRENORPHINE [Suspect]
     Indication: DRUG DEPENDENCE
     Route: 063
     Dates: start: 20110812, end: 201110
  4. PRENATAL VITAMINS [Suspect]
     Indication: SUPPLEMENTATION THERAPY
     Route: 064
     Dates: start: 201101, end: 20110812
  5. SUBOXONE TABLET [Suspect]
     Indication: DRUG DEPENDENCE
     Dosage: Dosing details unknown
     Route: 064

REACTIONS (5)
  - Premature baby [Recovered/Resolved]
  - Low birth weight baby [Recovered/Resolved]
  - Poor weight gain neonatal [Recovered/Resolved]
  - Foetal exposure during pregnancy [Recovered/Resolved]
  - Exposure during breast feeding [Recovered/Resolved]
